FAERS Safety Report 15106986 (Version 1)
Quarter: 2018Q3

REPORT INFORMATION
  Report Type: Spontaneous
  Country: US (occurrence: US)
  Receive Date: 20180704
  Receipt Date: 20180704
  Transmission Date: 20181010
  Serious: No
  Sender: FDA-Public Use
  Company Number: US-PFIZER INC-2018268527

PATIENT
  Age: 76 Year
  Sex: Female
  Weight: 72.57 kg

DRUGS (2)
  1. ADVIL [Suspect]
     Active Substance: IBUPROFEN
     Indication: PAIN
     Dosage: 200 MG, AS NEEDED(200 MG ONCE A DAY ONE TABLET EACH TIME SOMETIMES TWICE A DAY AS NEEDED FOR PAIN)
     Route: 048
     Dates: start: 201805
  2. SYNTHROID [Concomitant]
     Active Substance: LEVOTHYROXINE SODIUM
     Indication: THYROID DISORDER
     Dosage: 100 UG, DAILY(100 MCG DAILY)
     Route: 048
     Dates: start: 1972

REACTIONS (2)
  - Hypoaesthesia [Not Recovered/Not Resolved]
  - Musculoskeletal stiffness [Not Recovered/Not Resolved]

NARRATIVE: CASE EVENT DATE: 201806
